FAERS Safety Report 4906883-0 (Version None)
Quarter: 2006Q1

REPORT INFORMATION
  Report Type: 
  Country: None (occurrence: None)
  Receive Date: 20060207
  Receipt Date: 20060120
  Transmission Date: 20060701
  Serious: Yes (Death, Other)
  Sender: FDA-Public Use
  Company Number: JP200601003790

PATIENT
  Age: 65 Year
  Sex: Male
  Weight: 45 kg

DRUGS (2)
  1. GEMZAR [Suspect]
     Indication: HEPATIC NEOPLASM
     Dosage: 1000 MG/M2, OTHER, INTRAVENOUS
     Route: 042
     Dates: start: 20030901, end: 20040401
  2. CARBOPLATIN [Concomitant]

REACTIONS (4)
  - BONE MARROW FAILURE [None]
  - HEPATIC MASS [None]
  - NEOPLASM RECURRENCE [None]
  - THERAPY NON-RESPONDER [None]
